FAERS Safety Report 10030968 (Version 1)
Quarter: 2014Q1

REPORT INFORMATION
  Report Type: Report from Study
  Country: US (occurrence: US)
  Receive Date: 20140324
  Receipt Date: 20140324
  Transmission Date: 20141002
  Serious: Yes (Other)
  Sender: FDA-Public Use
  Company Number: US-ROCHE-1363640

PATIENT
  Age: 16 Year
  Sex: Female
  Weight: 38.4 kg

DRUGS (2)
  1. NUTROPIN AQ [Suspect]
     Indication: BODY HEIGHT BELOW NORMAL
     Route: 058
  2. SYNTHROID [Concomitant]
     Route: 048

REACTIONS (3)
  - Growth retardation [Unknown]
  - Vitamin D decreased [Unknown]
  - Fatigue [Unknown]
